FAERS Safety Report 6211404-9 (Version None)
Quarter: 2009Q2

REPORT INFORMATION
  Report Type: 
  Country: None (occurrence: None)
  Receive Date: 20090602
  Receipt Date: 20090522
  Transmission Date: 20091009
  Serious: Yes (Hospitalization, Other)
  Sender: FDA-Public Use
  Company Number: US-ELI_LILLY_AND_COMPANY-US200905004567

PATIENT
  Sex: Female
  Weight: 79.365 kg

DRUGS (2)
  1. ALIMTA [Suspect]
     Indication: TONGUE NEOPLASM MALIGNANT STAGE UNSPECIFIED
     Dosage: 500 MG/M2, EVERY 21 DAYS
     Route: 042
     Dates: start: 20090423, end: 20090522
  2. AVASTIN [Concomitant]
     Indication: TONGUE NEOPLASM MALIGNANT STAGE UNSPECIFIED
     Dosage: 15 MG/KG, EVERY 21 DAYS
     Dates: start: 20090423, end: 20090522

REACTIONS (10)
  - ALANINE AMINOTRANSFERASE ABNORMAL [None]
  - ASPARTATE AMINOTRANSFERASE ABNORMAL [None]
  - BLOOD ALBUMIN ABNORMAL [None]
  - BLOOD SODIUM ABNORMAL [None]
  - FATIGUE [None]
  - HAEMOGLOBIN DECREASED [None]
  - HYPOPHAGIA [None]
  - MALIGNANT NEOPLASM PROGRESSION [None]
  - NAUSEA [None]
  - PNEUMONIA [None]
